FAERS Safety Report 17959515 (Version 4)
Quarter: 2021Q4

REPORT INFORMATION
  Report Type: Report from Study
  Country: US (occurrence: None)
  Receive Date: 20200630
  Receipt Date: 20211108
  Transmission Date: 20220303
  Serious: Yes (Death, Life-Threatening, Other)
  Sender: FDA-Public Use
  Company Number: US-ROCHE-2631899

PATIENT
  Age: 66 Year
  Sex: Female
  Weight: 70 kg

DRUGS (4)
  1. ATEZOLIZUMAB [Suspect]
     Active Substance: ATEZOLIZUMAB
     Indication: Diffuse large B-cell lymphoma
     Dosage: SUBSEQUENT DOSE ON 12/OCT/2018
     Route: 065
     Dates: start: 20180919
  2. RITUXIMAB [Suspect]
     Active Substance: RITUXIMAB
     Indication: Diffuse large B-cell lymphoma
     Dosage: SUBSEQUENT DOSE ON 12/OCT/2018
     Route: 065
     Dates: start: 20180919
  3. GEMCITABINE [Suspect]
     Active Substance: GEMCITABINE
     Indication: Diffuse large B-cell lymphoma
     Dosage: SUBSEQUENT DOSE ON 12/OCT/2018
     Route: 065
     Dates: start: 20180919
  4. OXALIPLATIN [Suspect]
     Active Substance: OXALIPLATIN
     Indication: Diffuse large B-cell lymphoma
     Dosage: SUBSEQUENT DOSE ON 12/OCT/2018
     Route: 065
     Dates: start: 20180919

REACTIONS (11)
  - Cardiac arrest [Fatal]
  - Pneumonia [Unknown]
  - Anaemia [Unknown]
  - Diarrhoea [Unknown]
  - Hypertension [Unknown]
  - Hypokalaemia [Unknown]
  - Stevens-Johnson syndrome [Unknown]
  - Obesity [Unknown]
  - Neutrophil count decreased [Unknown]
  - Lymphocyte count decreased [Unknown]
  - Pain [Unknown]
